FAERS Safety Report 23853823 (Version 2)
Quarter: 2024Q4

REPORT INFORMATION
  Report Type: Spontaneous
  Country: US (occurrence: US)
  Receive Date: 20240514
  Receipt Date: 20241104
  Transmission Date: 20250115
  Serious: Yes (Other)
  Sender: BRISTOL-MYERS SQUIBB COMPANY
  Company Number: US-BRISTOL-MYERS SQUIBB COMPANY-2024-070654

PATIENT
  Age: 76 Year
  Sex: Female

DRUGS (2)
  1. REVLIMID [Suspect]
     Active Substance: LENALIDOMIDE
     Indication: Plasma cell myeloma
     Dosage: TAKE 1 CAPSULE BY MOUTH EVERY DAY FOR 14 DAYS EVERY 21 DAYS
     Route: 048
     Dates: end: 2022
  2. REVLIMID [Suspect]
     Active Substance: LENALIDOMIDE
     Indication: Neoplasm malignant
     Dosage: TAKE 1 CAPSULE BY MOUTH EVERY DAY FOR 14 DAYS FOLLOWED BY 7 DAYS OFF EVERY 21 DAYS
     Route: 048
     Dates: end: 2022

REACTIONS (5)
  - Plasma cell myeloma recurrent [Unknown]
  - Constipation [Unknown]
  - Arthritis [Unknown]
  - Off label use [Unknown]
  - Fatigue [Recovered/Resolved]
